FAERS Safety Report 7627032 (Version 8)
Quarter: 2015Q1

REPORT INFORMATION
  Report Type: Spontaneous
  Country: US (occurrence: US)
  Receive Date: 20101013
  Receipt Date: 20150320
  Transmission Date: 20150721
  Serious: Yes (Hospitalization, Other)
  Sender: FDA-Public Use
  Company Number: US-ASTRAZENECA-2010SE15966

PATIENT
  Age: 29767 Day
  Sex: Female
  Weight: 54 kg

DRUGS (10)
  1. NEXIUM [Suspect]
     Active Substance: ESOMEPRAZOLE MAGNESIUM
     Indication: DYSPEPSIA
     Route: 048
  2. NEXIUM [Suspect]
     Active Substance: ESOMEPRAZOLE MAGNESIUM
     Indication: GASTROOESOPHAGEAL REFLUX DISEASE
     Dosage: 40 MG, ONCE OR TWO TIMES A DAY
     Route: 048
  3. NEXIUM [Suspect]
     Active Substance: ESOMEPRAZOLE MAGNESIUM
     Indication: DYSPEPSIA
     Dosage: 40 MG, ONCE OR TWO TIMES A DAY
     Route: 048
  4. ZOFRAN [Concomitant]
     Active Substance: ONDANSETRON HYDROCHLORIDE
     Indication: NAUSEA
  5. NEXIUM [Suspect]
     Active Substance: ESOMEPRAZOLE MAGNESIUM
     Indication: DYSPEPSIA
     Route: 048
  6. NEXIUM [Suspect]
     Active Substance: ESOMEPRAZOLE MAGNESIUM
     Indication: GASTROOESOPHAGEAL REFLUX DISEASE
     Route: 048
  7. NEXIUM [Suspect]
     Active Substance: ESOMEPRAZOLE MAGNESIUM
     Indication: GASTROOESOPHAGEAL REFLUX DISEASE
     Route: 048
  8. DALMANE [Concomitant]
     Active Substance: FLURAZEPAM HYDROCHLORIDE
     Indication: SLEEP DISORDER
     Dates: start: 1985
  9. SYMBICORT [Suspect]
     Active Substance: BUDESONIDE\FORMOTEROL FUMARATE DIHYDRATE
     Indication: ASTHMA
     Dosage: 160/4.5 MCG, TWO PUFFS, TWO TIMES A DAY, WHEN SHE NEEDED IT
     Route: 055
  10. PAIN MEDICATIONS [Concomitant]
     Active Substance: UNSPECIFIED INGREDIENT
     Indication: PAIN

REACTIONS (29)
  - Asthma [Unknown]
  - Chest pain [Unknown]
  - Pain [Recovering/Resolving]
  - Stress [Not Recovered/Not Resolved]
  - Hiatus hernia [Unknown]
  - Nasopharyngitis [Unknown]
  - Feeding disorder [Unknown]
  - Intentional product misuse [Unknown]
  - Drug dose omission [Unknown]
  - Muscle spasms [Unknown]
  - Off label use [Unknown]
  - Fall [Unknown]
  - Ear discomfort [Unknown]
  - Vomiting [Unknown]
  - Body height decreased [Not Recovered/Not Resolved]
  - Injury [Recovering/Resolving]
  - Arthritis [Unknown]
  - Malaise [Unknown]
  - Muscle contractions involuntary [Unknown]
  - Respiratory disorder [Unknown]
  - Dyspepsia [Unknown]
  - Bronchitis [Unknown]
  - Dyspnoea [Unknown]
  - Post procedural complication [Recovering/Resolving]
  - Gastrooesophageal reflux disease [Unknown]
  - Anxiety [Unknown]
  - Tremor [Unknown]
  - Motion sickness [Unknown]
  - Drug dose omission [Not Recovered/Not Resolved]

NARRATIVE: CASE EVENT DATE: 20121212
